FAERS Safety Report 7599905-2 (Version None)
Quarter: 2011Q3

REPORT INFORMATION
  Report Type: 
  Country: None (occurrence: None)
  Receive Date: 20110711
  Receipt Date: 20110701
  Transmission Date: 20111222
  Serious: Yes (Other)
  Sender: FDA-Public Use
  Company Number: JP-ASTELLAS-2011US003632

PATIENT
  Age: 70 Year
  Sex: Male

DRUGS (1)
  1. TARCEVA [Suspect]
     Indication: LUNG NEOPLASM MALIGNANT
     Dosage: UNK
     Route: 048
     Dates: start: 20110128

REACTIONS (4)
  - DYSURIA [None]
  - SKIN DISORDER [None]
  - STOMATITIS [None]
  - DYSPHONIA [None]
